FAERS Safety Report 10023944 (Version 4)
Quarter: 2014Q2

REPORT INFORMATION
  Report Type: Spontaneous
  Country: US (occurrence: US)
  Receive Date: 20140320
  Receipt Date: 20140529
  Transmission Date: 20141212
  Serious: Yes (Hospitalization)
  Sender: FDA-Public Use
  Company Number: US-009507513-1403USA006211

PATIENT
  Age: 76 Year
  Sex: Female

DRUGS (7)
  1. COZAAR [Suspect]
     Indication: HYPERTENSION
     Dosage: 50 MG, UNK
     Route: 048
  2. COZAAR [Suspect]
     Indication: CEREBROVASCULAR ACCIDENT PROPHYLAXIS
     Dosage: 75 MG, UNK
     Route: 048
     Dates: start: 201402
  3. COZAAR [Suspect]
     Indication: CARDIOVASCULAR EVENT PROPHYLAXIS
  4. GLYBURIDE [Concomitant]
     Indication: DIABETES MELLITUS
     Dosage: UNK
     Dates: start: 2004, end: 2013
  5. GLYBURIDE [Concomitant]
     Dosage: UNK
     Dates: start: 2013
  6. METFORMIN [Concomitant]
     Indication: DIABETES MELLITUS
     Dosage: UNK
     Dates: start: 2004
  7. GLIPIZIDE [Concomitant]
     Dosage: UNK
     Dates: start: 2013

REACTIONS (6)
  - Pericardial effusion [Unknown]
  - Blood glucose abnormal [Unknown]
  - Central venous catheter removal [Unknown]
  - Central venous catheterisation [Unknown]
  - Device related infection [Unknown]
  - Wound [Unknown]
